FAERS Safety Report 16066422 (Version 1)
Quarter: 2019Q2

REPORT INFORMATION
  Report Type: Spontaneous
  Country: US (occurrence: US)
  Receive Date: 20190312
  Receipt Date: 20190312
  Transmission Date: 20190711
  Serious: Yes (Hospitalization)
  Sender: FDA-Public Use
  Company Number: None

PATIENT
  Age: 58 Year
  Sex: Male
  Weight: 101.25 kg

DRUGS (2)
  1. INDOMETHACIN. [Suspect]
     Active Substance: INDOMETHACIN
     Indication: LIMB CRUSHING INJURY
     Route: 048
     Dates: start: 20180921, end: 20181110
  2. COLACE [Concomitant]
     Active Substance: DOCUSATE SODIUM
     Dates: start: 20180411, end: 20190312

REACTIONS (3)
  - Asthenia [None]
  - Pyrexia [None]
  - Pain [None]

NARRATIVE: CASE EVENT DATE: 20181031
